FAERS Safety Report 16809242 (Version 2)
Quarter: 2019Q3

REPORT INFORMATION
  Report Type: Spontaneous
  Country: AU (occurrence: AU)
  Receive Date: 20190916
  Receipt Date: 20190925
  Transmission Date: 20191005
  Serious: Yes (Other)
  Sender: FDA-Public Use
  Company Number: PHHY2019AU213686

PATIENT
  Sex: Female

DRUGS (1)
  1. PANTOPRAZOLE SODIUM. [Suspect]
     Active Substance: PANTOPRAZOLE SODIUM
     Indication: PRODUCT USED FOR UNKNOWN INDICATION
     Dosage: 20 MG, QD
     Route: 065

REACTIONS (7)
  - Visual impairment [Recovered/Resolved]
  - Headache [Recovered/Resolved]
  - Cerebral disorder [Recovered/Resolved]
  - Dementia [Recovered/Resolved]
  - Amnesia [Recovered/Resolved]
  - Dysmenorrhoea [Recovered/Resolved]
  - Repetitive speech [Recovered/Resolved]

NARRATIVE: CASE EVENT DATE: 201908
